FAERS Safety Report 26135905 (Version 1)
Quarter: 2025Q4

REPORT INFORMATION
  Report Type: Spontaneous
  Country: JP (occurrence: JP)
  Receive Date: 20251209
  Receipt Date: 20251209
  Transmission Date: 20260117
  Serious: Yes (Other)
  Sender: PFIZER
  Company Number: JP-PFIZER INC-PV202500142036

PATIENT
  Age: 9 Decade
  Sex: Female

DRUGS (2)
  1. METHOTREXATE SODIUM [Suspect]
     Active Substance: METHOTREXATE SODIUM
     Indication: Rheumatoid arthritis
     Dosage: 12 MG, WEEKLY
     Dates: start: 2000
  2. PREDONINE [Concomitant]
     Active Substance: PREDNISOLONE
     Indication: Spinal stenosis
     Dosage: 2.5 MG, DAILY

REACTIONS (1)
  - Epstein-Barr virus positive mucocutaneous ulcer [Recovering/Resolving]
